FAERS Safety Report 7901680-6 (Version None)
Quarter: 2011Q4

REPORT INFORMATION
  Report Type: 
  Country: None (occurrence: None)
  Receive Date: 20111108
  Receipt Date: 20111104
  Transmission Date: 20120403
  Serious: Yes (Hospitalization)
  Sender: FDA-Public Use
  Company Number: FR-PFIZER INC-2011269973

PATIENT
  Age: 17 Year
  Sex: Male

DRUGS (2)
  1. IBUPROFEN (ADVIL) [Suspect]
     Indication: RHINORRHOEA
     Dosage: 2 TABLETS OF 400MG
     Route: 048
     Dates: start: 20110917, end: 20110917
  2. PARACETAMOL [Concomitant]
     Indication: RHINORRHOEA

REACTIONS (1)
  - RENAL FAILURE ACUTE [None]
